FAERS Safety Report 8625507-2 (Version None)
Quarter: 2012Q3

REPORT INFORMATION
  Report Type: 
  Country: None (occurrence: None)
  Receive Date: 20120821
  Receipt Date: 20120806
  Transmission Date: 20120928
  Serious: Yes (Hospitalization)
  Sender: FDA-Public Use
  Company Number: US-ARROW-2012-14411

PATIENT
  Age: 28 Year
  Sex: Female

DRUGS (1)
  1. TRAMADOL HYDROCHLORIDE [Suspect]
     Indication: INTENTIONAL DRUG MISUSE
     Dosage: 800 MG, DAILY
     Route: 065

REACTIONS (5)
  - DRUG LEVEL INCREASED [None]
  - COMPLEX PARTIAL SEIZURES [None]
  - DRUG SCREEN FALSE POSITIVE [None]
  - TACHYCARDIA [None]
  - CONFUSIONAL STATE [None]
